FAERS Safety Report 5846501-0 (Version None)
Quarter: 2008Q3

REPORT INFORMATION
  Report Type: 
  Country: None (occurrence: None)
  Receive Date: 20080815
  Receipt Date: 20080808
  Transmission Date: 20090109
  Serious: Yes (Death)
  Sender: FDA-Public Use
  Company Number: JP-ASTRAZENECA-2008SE03858

PATIENT
  Age: 0 Week

DRUGS (2)
  1. BLOPRESS [Suspect]
     Indication: HYPERTENSION
     Route: 064
     Dates: end: 20080730
  2. ASPIRIN [Concomitant]
     Route: 064

REACTIONS (2)
  - PREMATURE BABY [None]
  - PULMONARY HYPOPLASIA [None]
